FAERS Safety Report 5061161-7 (Version None)
Quarter: 2006Q3

REPORT INFORMATION
  Report Type: 
  Country: None (occurrence: None)
  Receive Date: 20060719
  Receipt Date: 20060719
  Transmission Date: 20061208
  Serious: Yes (Hospitalization)
  Sender: FDA-Public Use
  Company Number: None

PATIENT
  Age: 66 Year
  Sex: Male
  Weight: 92.0802 kg

DRUGS (1)
  1. ISOPHANE INSULIN [Suspect]
     Dosage: 37 UNITS SC BID
     Route: 058

REACTIONS (1)
  - HYPOGLYCAEMIA [None]
